FAERS Safety Report 5030910-6 (Version None)
Quarter: 2006Q2

REPORT INFORMATION
  Report Type: 
  Country: None (occurrence: None)
  Receive Date: 20060619
  Receipt Date: 20060607
  Transmission Date: 20061013
  Serious: Yes (Hospitalization)
  Sender: FDA-Public Use
  Company Number: 2006-00844

PATIENT
  Age: 48 Year
  Sex: Female
  Weight: 57.2 kg

DRUGS (12)
  1. VELCADE [Suspect]
     Indication: MULTIPLE MYELOMA
     Dosage: 1.30 MG/M2, INTRAVENOUS
     Route: 042
     Dates: start: 20060303, end: 20060512
  2. DOXIL [Suspect]
     Indication: MULTIPLE MYELOMA
     Dosage: 30.00 MG/M2, INTRAVENOUS
     Route: 042
     Dates: start: 20060303, end: 20060327
  3. ONDASETRON [Concomitant]
  4. MAXOLON (METOCLOPRAMIDE) [Concomitant]
  5. DOMPERIDONE [Concomitant]
  6. LORAZEPAM [Concomitant]
  7. COLOXYL WITH SENNA (SENNOSIDE A+B, DOCUSATE SODIUM) [Concomitant]
  8. SORBITOL [Concomitant]
  9. MOVICOL (SODIUM BICARBONATE, SODIUM CHLORIDE, MACROGOL, POTASSIUM CHLO [Concomitant]
  10. VALTREX [Concomitant]
  11. FLUCONAZOLE [Concomitant]
  12. G-CSF (GRANULOCYTE COLONY STIMULATING FACTOR) [Concomitant]

REACTIONS (6)
  - ABDOMINAL PAIN UPPER [None]
  - DUODENITIS [None]
  - GASTROINTESTINAL ANGIODYSPLASIA [None]
  - HAEMATEMESIS [None]
  - MALLORY-WEISS SYNDROME [None]
  - REFLUX OESOPHAGITIS [None]
